FAERS Safety Report 13427267 (Version 3)
Quarter: 2017Q2

REPORT INFORMATION
  Report Type: Report from Study
  Country: CL (occurrence: CL)
  Receive Date: 20170411
  Receipt Date: 20170519
  Transmission Date: 20170830
  Serious: Yes (Death)
  Sender: FDA-Public Use
  Company Number: PHHY2017CL054424

PATIENT
  Age: 70 Year
  Sex: Male

DRUGS (1)
  1. EXJADE [Suspect]
     Active Substance: DEFERASIROX
     Indication: PRODUCT USED FOR UNKNOWN INDICATION
     Dosage: 500 MG, QD
     Route: 048
     Dates: start: 20150420

REACTIONS (5)
  - Cardio-respiratory arrest [Fatal]
  - Gait disturbance [Fatal]
  - Chronic obstructive pulmonary disease [Fatal]
  - Pleural effusion [Fatal]
  - Necrosis [Fatal]
